FAERS Safety Report 8033125-2 (Version None)
Quarter: 2012Q1

REPORT INFORMATION
  Report Type: 
  Country: None (occurrence: None)
  Receive Date: 20120110
  Receipt Date: 20120102
  Transmission Date: 20120608
  Serious: Yes (Hospitalization, Other)
  Sender: FDA-Public Use
  Company Number: US-NOVOPROD-342448

PATIENT

DRUGS (4)
  1. LANTUS [Suspect]
     Dosage: 10 U, Q PM
     Route: 058
  2. GLUCAGON [Suspect]
     Indication: HYPOGLYCAEMIA
     Dosage: UNK, PRN
     Dates: start: 20090101
  3. NOVOLOG [Suspect]
     Indication: TYPE 1 DIABETES MELLITUS
     Dosage: SLIDING SCALE
     Route: 058
     Dates: start: 20110101
  4. LANTUS [Suspect]
     Indication: TYPE 1 DIABETES MELLITUS
     Dosage: 12 U, Q AM
     Route: 058

REACTIONS (9)
  - NEPHROLITHIASIS [None]
  - PNEUMONIA [None]
  - DIABETIC KETOACIDOSIS [None]
  - BLOOD GLUCOSE FLUCTUATION [None]
  - PULMONARY OEDEMA [None]
  - INFECTION [None]
  - CYSTITIS [None]
  - HYPOGLYCAEMIA [None]
  - KIDNEY INFECTION [None]
